FAERS Safety Report 22102415 (Version 1)
Quarter: 2023Q1

REPORT INFORMATION
  Report Type: Other
  Country: IT (occurrence: IT)
  Receive Date: 20230316
  Receipt Date: 20230316
  Transmission Date: 20230417
  Serious: Yes (Other)
  Sender: FDA-Public Use
  Company Number: IT-CELLTRION INC.-2023IT005090

PATIENT

DRUGS (2)
  1. BEVACIZUMAB [Suspect]
     Active Substance: BEVACIZUMAB
     Indication: Hepatic cancer
  2. ATEZOLIZUMAB [Suspect]
     Active Substance: ATEZOLIZUMAB
     Indication: Hepatic cancer

REACTIONS (7)
  - Hypokalaemia [Unknown]
  - Macule [Unknown]
  - Proteinuria [Unknown]
  - Asthenia [Unknown]
  - Hypomagnesaemia [Unknown]
  - Palmar-plantar erythrodysaesthesia syndrome [Unknown]
  - Pain [Unknown]
